FAERS Safety Report 4659953-9 (Version None)
Quarter: 2005Q2

REPORT INFORMATION
  Report Type: 
  Country: None (occurrence: None)
  Receive Date: 20050510
  Receipt Date: 20050430
  Transmission Date: 20051028
  Serious: Yes (Other)
  Sender: FDA-Public Use
  Company Number: 2005023518

PATIENT
  Age: 41 Year
  Sex: Female

DRUGS (7)
  1. ZOLOFT [Suspect]
     Indication: DEPRESSION
     Dosage: 50 MG (50 MG, 1 IN 1 D), ORAL
     Route: 048
     Dates: start: 20041130, end: 20050125
  2. LEVOTHYROXINE SODIUM [Concomitant]
  3. OMEPRAZOLE [Concomitant]
  4. ATORVASTATIN CALCIUM [Concomitant]
  5. MEDROXYPROGESTERONE [Concomitant]
  6. METFORMIN HCL [Concomitant]
  7. ENALAPRIL MALEATE [Concomitant]

REACTIONS (6)
  - ANOREXIA [None]
  - LEUKOPENIA [None]
  - NAUSEA [None]
  - NEUTROPENIA [None]
  - VOMITING [None]
  - WEIGHT DECREASED [None]
